FAERS Safety Report 10156309 (Version 10)
Quarter: 2016Q2

REPORT INFORMATION
  Report Type: Spontaneous
  Country: JP (occurrence: JP)
  Receive Date: 20140507
  Receipt Date: 20160610
  Transmission Date: 20160815
  Serious: Yes (Other)
  Sender: FDA-Public Use
  Company Number: JP-AMGEN INC.-JPNSP2014029048

PATIENT
  Sex: Female

DRUGS (15)
  1. ENBREL [Suspect]
     Active Substance: ETANERCEPT
     Dosage: 25 MG, 2X/WEEK
     Route: 058
     Dates: start: 20140420
  2. RHEUMATREX [Suspect]
     Active Substance: METHOTREXATE SODIUM
     Dosage: 8 MG, WEEKLY
     Route: 048
     Dates: start: 201401
  3. HALCION [Suspect]
     Active Substance: TRIAZOLAM
     Indication: PRODUCT USED FOR UNKNOWN INDICATION
     Dosage: UNK
     Route: 048
  4. KOLANTYL                           /00130401/ [Concomitant]
     Indication: GASTRIC ULCER
     Dosage: UNK
  5. DEPAS [Concomitant]
     Active Substance: ETIZOLAM
     Dosage: UNK
  6. KLARICID                           /00984601/ [Concomitant]
     Active Substance: CLARITHROMYCIN
     Indication: NASOPHARYNGITIS
  7. TRAMCET [Concomitant]
     Active Substance: ACETAMINOPHEN\TRAMADOL
     Indication: ARTHRALGIA
     Dosage: UNK
  8. ENBREL [Suspect]
     Active Substance: ETANERCEPT
     Indication: PRODUCT USED FOR UNKNOWN INDICATION
     Dosage: 25 MG, 2X/WEEK
     Route: 058
     Dates: start: 2013
  9. ENBREL [Suspect]
     Active Substance: ETANERCEPT
     Dosage: 25 MG, WEEKLY
     Route: 058
     Dates: start: 20140320
  10. RHEUMATREX [Suspect]
     Active Substance: METHOTREXATE SODIUM
     Dosage: 12 MG, WEEKLY
     Route: 065
     Dates: start: 201402
  11. CLARITH [Concomitant]
     Active Substance: CLARITHROMYCIN
     Indication: BRONCHITIS
     Dosage: UNK
  12. KLARICID                           /00984601/ [Concomitant]
     Active Substance: CLARITHROMYCIN
     Indication: CHRONIC SINUSITIS
     Dosage: UNK
  13. KLARICID                           /00984601/ [Concomitant]
     Active Substance: CLARITHROMYCIN
     Indication: UPPER RESPIRATORY TRACT INFLAMMATION
  14. RHEUMATREX [Suspect]
     Active Substance: METHOTREXATE SODIUM
     Indication: RHEUMATOID ARTHRITIS
     Dosage: 6MG WEEKLY
     Route: 048
     Dates: start: 201311
  15. MOBIC [Concomitant]
     Active Substance: MELOXICAM
     Dosage: UNK

REACTIONS (33)
  - Sjogren^s syndrome [Unknown]
  - Oedema peripheral [Unknown]
  - Asthenia [Unknown]
  - Nasopharyngitis [Recovered/Resolved]
  - Malaise [Unknown]
  - Gastrointestinal disorder [Unknown]
  - Injection site reaction [Unknown]
  - Dizziness [Unknown]
  - Abdominal pain upper [Unknown]
  - Red blood cell sedimentation rate increased [Unknown]
  - Injection site swelling [Unknown]
  - Seasonal allergy [Unknown]
  - Arthralgia [Unknown]
  - Cough [Unknown]
  - Syncope [Unknown]
  - Diarrhoea [Recovered/Resolved]
  - Injection site haemorrhage [Unknown]
  - Pain in extremity [Unknown]
  - Depressed mood [Unknown]
  - Inappropriate schedule of drug administration [Unknown]
  - Urticaria [Unknown]
  - Abdominal pain lower [Recovered/Resolved]
  - Injection site erythema [Unknown]
  - Bedridden [Unknown]
  - Epigastric discomfort [Unknown]
  - Nausea [Recovered/Resolved]
  - Dental caries [Unknown]
  - Injection site pain [Unknown]
  - Drug ineffective [Unknown]
  - Joint swelling [Unknown]
  - Haemoptysis [Unknown]
  - Oropharyngeal pain [Unknown]
  - Candida infection [Recovering/Resolving]

NARRATIVE: CASE EVENT DATE: 2014
